FAERS Safety Report 7213847-3 (Version None)
Quarter: 2011Q1

REPORT INFORMATION
  Report Type: 
  Country: None (occurrence: None)
  Receive Date: 20110106
  Receipt Date: 20101229
  Transmission Date: 20110831
  Serious: Yes (Hospitalization)
  Sender: FDA-Public Use
  Company Number: PHHO2010US19770

PATIENT
  Sex: Female
  Weight: 155 kg

DRUGS (3)
  1. PLAVIX [Concomitant]
  2. CGS 20267 [Suspect]
     Indication: BREAST CANCER
     Dosage: 2.5 MG, DAILY
     Route: 048
     Dates: start: 20070601
  3. PROCARDIA XL [Concomitant]

REACTIONS (6)
  - HIP SURGERY [None]
  - FEMUR FRACTURE [None]
  - FALL [None]
  - DELIRIUM [None]
  - ARTHRALGIA [None]
  - ANAEMIA POSTOPERATIVE [None]
